FAERS Safety Report 11439808 (Version 1)
Quarter: 2015Q3

REPORT INFORMATION
  Report Type: Spontaneous
  Country: US (occurrence: US)
  Receive Date: 20150901
  Receipt Date: 20150901
  Transmission Date: 20151125
  Serious: Yes (Hospitalization)
  Sender: FDA-Public Use
  Company Number: US-ROCHE-1125499

PATIENT
  Age: 51 Year
  Sex: Female

DRUGS (6)
  1. BOCEPREVIR [Suspect]
     Active Substance: BOCEPREVIR
     Indication: PRODUCT USED FOR UNKNOWN INDICATION
     Dosage: THERAPY INTERRUPTED ON AN UNKNOWN DATE.
     Route: 065
  2. BOCEPREVIR [Suspect]
     Active Substance: BOCEPREVIR
     Dosage: THERAPY RESTARTED ON UNKNOWN DATE
     Route: 065
  3. COPEGUS [Suspect]
     Active Substance: RIBAVIRIN
     Indication: PRODUCT USED FOR UNKNOWN INDICATION
     Dosage: THERAPY STOPPED ON UNKNOWN DATE
     Route: 065
  4. BOCEPREVIR [Suspect]
     Active Substance: BOCEPREVIR
     Dosage: DOSE REDUCED. THERAPY STOPPED ON UNKNOWN DATE
     Route: 065
  5. PROZAC [Concomitant]
     Active Substance: FLUOXETINE HYDROCHLORIDE
  6. PEGASYS [Suspect]
     Active Substance: PEGINTERFERON ALFA-2A
     Indication: PRODUCT USED FOR UNKNOWN INDICATION
     Dosage: THERAPY STOPPED ON UNKNOWN DATE
     Route: 065

REACTIONS (4)
  - Unevaluable event [Unknown]
  - Suicidal ideation [Unknown]
  - Depression [Unknown]
  - Neutropenia [Unknown]
